FAERS Safety Report 25484105 (Version 2)
Quarter: 2025Q3

REPORT INFORMATION
  Report Type: Report from Study
  Country: US (occurrence: US)
  Receive Date: 20250626
  Receipt Date: 20250731
  Transmission Date: 20251021
  Serious: No
  Sender: MALLINCKRODT
  Company Number: US-MALLINCKRODT-MNK202503923

PATIENT
  Age: 80 Year
  Sex: Male

DRUGS (3)
  1. CORTICOTROPIN [Suspect]
     Active Substance: CORTICOTROPIN
     Indication: Nephritic syndrome
     Dosage: 40 UNITS
     Route: 058
     Dates: start: 20250623
  2. CORTICOTROPIN [Suspect]
     Active Substance: CORTICOTROPIN
     Indication: Congenital nephrotic syndrome
  3. SIROLIMUS [Concomitant]
     Active Substance: SIROLIMUS

REACTIONS (5)
  - Pain [Unknown]
  - Skin discolouration [Unknown]
  - Photosensitivity reaction [Unknown]
  - Injection site pain [Unknown]
  - Injection site haemorrhage [Unknown]

NARRATIVE: CASE EVENT DATE: 20250101
